FAERS Safety Report 14502483 (Version 2)
Quarter: 2018Q3

REPORT INFORMATION
  Report Type: Report from Study
  Country: US (occurrence: US)
  Receive Date: 20180208
  Receipt Date: 20180718
  Transmission Date: 20181010
  Serious: Yes (Other)
  Sender: FDA-Public Use
  Company Number: US-AMGEN-USASP2018015064

PATIENT
  Age: 84 Year
  Sex: Female

DRUGS (3)
  1. COLESEVELAM [Concomitant]
     Active Substance: COLESEVELAM
     Indication: BLOOD CHOLESTEROL INCREASED
  2. REPATHA [Suspect]
     Active Substance: EVOLOCUMAB
     Indication: BLOOD CHOLESTEROL INCREASED
     Dosage: 140 MG, Q2WK
     Route: 065
  3. REPATHA [Suspect]
     Active Substance: EVOLOCUMAB
     Indication: HYPERCHOLESTEROLAEMIA

REACTIONS (5)
  - Pruritus [Recovering/Resolving]
  - Musculoskeletal stiffness [Unknown]
  - Peripheral swelling [Unknown]
  - Arterial occlusive disease [Unknown]
  - Knee arthroplasty [Unknown]
